FAERS Safety Report 7398131-X (Version None)
Quarter: 2011Q2

REPORT INFORMATION
  Report Type: 
  Country: None (occurrence: None)
  Receive Date: 20110406
  Receipt Date: 20110331
  Transmission Date: 20111010
  Serious: Yes (Life-Threatening, Hospitalization)
  Sender: FDA-Public Use
  Company Number: US-ROCHE-767894

PATIENT
  Sex: Female
  Weight: 81.5 kg

DRUGS (20)
  1. VYTORIN [Concomitant]
     Route: 048
     Dates: end: 20110323
  2. CENTRUM [Concomitant]
     Route: 048
     Dates: end: 20110323
  3. ZOFRAN [Concomitant]
     Dosage: INDICATION: PREVENTION OF CANCER CHEMOTHERAPY-INDUCED NAUSEA AND VOMITING
     Route: 048
     Dates: start: 20110307, end: 20110323
  4. SYNTHROID [Concomitant]
     Route: 048
  5. LIOTHYRONINE SODIUM [Concomitant]
     Route: 048
  6. TEMOZOLOMIDE [Concomitant]
     Dates: start: 20100916, end: 20101111
  7. LEXAPRO [Concomitant]
     Route: 048
     Dates: start: 20100930, end: 20110323
  8. SYNTHROID [Concomitant]
     Route: 048
     Dates: end: 20110323
  9. SENOKOT [Concomitant]
     Dosage: DOSE: 1-2 TABLETS
     Route: 048
     Dates: end: 20110323
  10. BEVACIZUMAB [Suspect]
     Indication: GLIOBLASTOMA MULTIFORME
     Dosage: 14 DAY CYCLE
     Route: 042
     Dates: start: 20100722, end: 20110317
  11. DEXAMETHASONE [Concomitant]
     Route: 048
     Dates: start: 20110217, end: 20110323
  12. KEPPRA [Concomitant]
     Route: 048
  13. OXYBUTYNIN [Concomitant]
     Route: 048
     Dates: start: 20110126, end: 20110323
  14. MIRALAX [Concomitant]
     Dosage: DOSE: 17 GRAM=1 PACKET.
     Route: 048
     Dates: end: 20110323
  15. ACYCLOVIR [Concomitant]
     Indication: HERPES ZOSTER
     Route: 048
     Dates: start: 20100923, end: 20110323
  16. COLACE [Concomitant]
     Route: 048
     Dates: end: 20110323
  17. LIOTHYRONINE SODIUM [Concomitant]
     Route: 048
     Dates: end: 20110323
  18. TEMOZOLOMIDE [Concomitant]
     Dosage: RESTARTED
     Dates: start: 20101117, end: 20110308
  19. PRILOSEC [Concomitant]
     Route: 048
     Dates: end: 20110323
  20. KEPPRA [Concomitant]
     Route: 048
     Dates: start: 20110111, end: 20110323

REACTIONS (8)
  - DEPRESSED LEVEL OF CONSCIOUSNESS [None]
  - MUSCULAR WEAKNESS [None]
  - HYPERTENSION [None]
  - PYREXIA [None]
  - PLATELET COUNT DECREASED [None]
  - MUSCLE SPASTICITY [None]
  - SINUS TACHYCARDIA [None]
  - GLOSSOPHARYNGEAL NERVE DISORDER [None]
